FAERS Safety Report 8499365-3 (Version None)
Quarter: 2012Q3

REPORT INFORMATION
  Report Type: 
  Country: None (occurrence: None)
  Receive Date: 20120710
  Receipt Date: 20120628
  Transmission Date: 20120928
  Serious: Yes (Hospitalization, Other)
  Sender: FDA-Public Use
  Company Number: US-JNJFOC-20120502074

PATIENT
  Sex: Female
  Weight: 77.11 kg

DRUGS (5)
  1. REMICADE [Suspect]
     Route: 042
  2. REMICADE [Suspect]
     Route: 042
     Dates: start: 20120101
  3. REMICADE [Suspect]
     Indication: CROHN'S DISEASE
     Route: 042
     Dates: start: 20120604, end: 20120604
  4. REMICADE [Suspect]
     Route: 042
     Dates: start: 20120501
  5. REMICADE [Suspect]
     Route: 042
     Dates: start: 20120301

REACTIONS (13)
  - THROAT TIGHTNESS [None]
  - ERYTHEMA [None]
  - URTICARIA [None]
  - DEHYDRATION [None]
  - BLOOD POTASSIUM DECREASED [None]
  - PRURITUS [None]
  - FEELING HOT [None]
  - DECREASED APPETITE [None]
  - INFUSION RELATED REACTION [None]
  - ARTHRALGIA [None]
  - BLOOD SODIUM DECREASED [None]
  - FATIGUE [None]
  - ASTHENIA [None]
